FAERS Safety Report 8724610 (Version 2)
Quarter: 2013Q2

REPORT INFORMATION
  Report Type: Report from Study
  Country: US (occurrence: US)
  Receive Date: 20120815
  Receipt Date: 20130419
  Transmission Date: 20140414
  Serious: Yes (Other)
  Sender: FDA-Public Use
  Company Number: US-US-EMD SERONO, INC.-7153694

PATIENT
  Age: 47 Year
  Sex: Male
  Weight: 112 kg

DRUGS (2)
  1. REBIF [Suspect]
     Indication: MULTIPLE SCLEROSIS
     Route: 058
     Dates: start: 20120601
  2. FLEXERIL                           /00428402/ [Concomitant]
     Indication: MUSCLE SPASMS

REACTIONS (11)
  - Cervical vertebral fracture [Unknown]
  - Face injury [Unknown]
  - Road traffic accident [Recovered/Resolved]
  - Joint injury [Unknown]
  - Bowel movement irregularity [Unknown]
  - Rhinorrhoea [Unknown]
  - Eye injury [Unknown]
  - Back pain [Unknown]
  - Pain [Unknown]
  - Injection site erythema [Unknown]
  - Injection site pain [Unknown]
